FAERS Safety Report 8255396-X (Version None)
Quarter: 2012Q2

REPORT INFORMATION
  Report Type: 
  Country: None (occurrence: None)
  Receive Date: 20120403
  Receipt Date: 20120326
  Transmission Date: 20120825
  Serious: Yes (Hospitalization)
  Sender: FDA-Public Use
  Company Number: US-ASTELLAS-2012US002856

PATIENT
  Sex: Male
  Weight: 100 kg

DRUGS (5)
  1. NASONEX [Concomitant]
     Indication: HYPERSENSITIVITY
     Dosage: UNK
     Route: 045
  2. METFORMIN HCL [Concomitant]
     Indication: INSULIN RESISTANCE
     Dosage: 500 MG, BID
     Route: 048
  3. TOPAMAX [Concomitant]
     Indication: INSULIN RESISTANCE
     Dosage: 50 MG, UID/QD
     Route: 048
  4. TACROLIMUS [Suspect]
     Indication: DERMATITIS ATOPIC
     Dosage: 0.03 %, BID
     Route: 061
     Dates: start: 20080424
  5. ZYRTEC [Concomitant]
     Indication: HYPERSENSITIVITY
     Dosage: 10 MG, UID/QD
     Route: 048

REACTIONS (1)
  - WOUND INFECTION STAPHYLOCOCCAL [None]
